FAERS Safety Report 22630410 (Version 3)
Quarter: 2023Q2

REPORT INFORMATION
  Report Type: Spontaneous
  Country: US (occurrence: US)
  Receive Date: 20230622
  Receipt Date: 20230630
  Transmission Date: 20230721
  Serious: Yes (Other)
  Sender: FDA-Public Use
  Company Number: US-PFIZER INC-PV202300108832

PATIENT
  Age: 1 Year
  Sex: Male

DRUGS (1)
  1. BENEFIX [Suspect]
     Active Substance: COAGULATION FACTOR IX RECOMBINANT HUMAN\ISOPROPYL ALCOHOL
     Indication: Factor VIII deficiency
     Dosage: 100 IU/KG (1 DAILY ON DEMAND FOR A BLEED)

REACTIONS (3)
  - Epistaxis [Not Recovered/Not Resolved]
  - Haemorrhage [Unknown]
  - Off label use [Unknown]
